FAERS Safety Report 4550326-6 (Version None)
Quarter: 2004Q4

REPORT INFORMATION
  Report Type: 
  Country: None (occurrence: None)
  Receive Date: 20041227
  Receipt Date: 20041116
  Transmission Date: 20050328
  Serious: No
  Sender: FDA-Public Use
  Company Number: 04P-163-0280702-00

PATIENT
  Sex: Female
  Weight: 67.1324 kg

DRUGS (11)
  1. HUMIRA [Suspect]
     Indication: RHEUMATOID ARTHRITIS
     Dosage: 40 MG, 1 IN 1 WK, SUBCUTANEOUS
     Route: 058
     Dates: start: 20040804, end: 20041105
  2. NAPROXEN [Concomitant]
  3. SULFASALAZINE [Concomitant]
  4. ALENDRONATE SODIUM [Concomitant]
  5. PREDNISONE [Concomitant]
  6. METHOTREXATE SODIUM [Concomitant]
  7. MULTI-VITAMIN [Concomitant]
  8. FOLIC ACID [Concomitant]
  9. TOCOPHEROL CONCENTRATE CAP [Concomitant]
  10. GLUCOSAMINE [Concomitant]
  11. ASCORBIC ACID [Concomitant]

REACTIONS (1)
  - NASOPHARYNGITIS [None]
